FAERS Safety Report 17830484 (Version 1)
Quarter: 2020Q2

REPORT INFORMATION
  Report Type: Spontaneous
  Country: US (occurrence: US)
  Receive Date: 20200527
  Receipt Date: 20200527
  Transmission Date: 20200714
  Serious: Yes (Other)
  Sender: FDA-Public Use
  Company Number: US-BAYER-2020-096779

PATIENT
  Age: 68 Year
  Sex: Male

DRUGS (2)
  1. ACETYLSALICYLIC ACID [Suspect]
     Active Substance: ASPIRIN
  2. OCTREOTIDE. [Concomitant]
     Active Substance: OCTREOTIDE
     Route: 058

REACTIONS (1)
  - Gastrointestinal haemorrhage [None]
